FAERS Safety Report 6091124-4 (Version None)
Quarter: 2009Q1

REPORT INFORMATION
  Report Type: 
  Country: None (occurrence: None)
  Receive Date: 20090219
  Receipt Date: 20090219
  Transmission Date: 20090719
  Serious: Yes (Life-Threatening)
  Sender: FDA-Public Use
  Company Number: None

PATIENT
  Sex: Male

DRUGS (2)
  1. PAMELOR [Suspect]
     Indication: DEPRESSION
     Dosage: 75 MG X 2 E 1 YEAR
     Dates: start: 19880401
  2. PAMELOR [Suspect]
     Indication: DEPRESSION
     Dosage: 75 MG X 2 E 1 YEAR
     Dates: start: 19890401

REACTIONS (4)
  - AGGRESSION [None]
  - IMPULSIVE BEHAVIOUR [None]
  - MANIA [None]
  - PSYCHOTIC DISORDER [None]
